FAERS Safety Report 18438516 (Version 3)
Quarter: 2021Q1

REPORT INFORMATION
  Report Type: Report from Study
  Country: US (occurrence: US)
  Receive Date: 20201028
  Receipt Date: 20210205
  Transmission Date: 20210419
  Serious: No
  Sender: FDA-Public Use
  Company Number: NVSC2020US288432

PATIENT
  Sex: Male

DRUGS (1)
  1. ENTRESTO [Suspect]
     Active Substance: SACUBITRIL\VALSARTAN
     Indication: CARDIAC FAILURE
     Dosage: 100 MG, BID(49/51 MG)
     Route: 048
     Dates: start: 20201012

REACTIONS (4)
  - Weight increased [Unknown]
  - Cough [Unknown]
  - Fluid retention [Unknown]
  - Dyspnoea [Unknown]
